FAERS Safety Report 9887443 (Version 1)
Quarter: 2014Q1

REPORT INFORMATION
  Report Type: Spontaneous
  Country: PT (occurrence: None)
  Receive Date: 20140206
  Receipt Date: 20140206
  Transmission Date: 20141002
  Serious: Yes (Other)
  Sender: FDA-Public Use
  Company Number: 2164862

PATIENT
  Sex: 0

DRUGS (2)
  1. METHOTREXATE [Suspect]
     Indication: GLIOBLASTOMA
     Dosage: INTRATHECAL
  2. THERAPEUTIC RADIOPHARMACEUTICALS [Suspect]
     Indication: GLIOBLASTOMA

REACTIONS (1)
  - Leukoencephalopathy [None]
